FAERS Safety Report 4367133-X (Version None)
Quarter: 2004Q2

REPORT INFORMATION
  Report Type: 
  Country: None (occurrence: None)
  Receive Date: 20040528
  Receipt Date: 20040426
  Transmission Date: 20050107
  Serious: Yes (Death, Hospitalization)
  Sender: FDA-Public Use
  Company Number: FR-GLAXOSMITHKLINE-B0331907A

PATIENT
  Age: 78 Year
  Sex: Male
  Weight: 70 kg

DRUGS (2)
  1. AVANDIA [Suspect]
     Dosage: 4MG PER DAY
     Route: 048
     Dates: start: 20040101, end: 20040301
  2. SPIRONOLACTONE [Concomitant]
     Dosage: 75MG PER DAY
     Route: 048

REACTIONS (6)
  - ASCITES [None]
  - GENERALISED OEDEMA [None]
  - HEPATIC ENCEPHALOPATHY [None]
  - HEPATOCELLULAR DAMAGE [None]
  - JAUNDICE [None]
  - RECTAL HAEMORRHAGE [None]
